FAERS Safety Report 19943975 (Version 1)
Quarter: 2021Q4

REPORT INFORMATION
  Report Type: Spontaneous
  Country: US (occurrence: US)
  Receive Date: 20211007
  Receipt Date: 20211007
  Transmission Date: 20220303
  Serious: Yes (Hospitalization)
  Sender: FDA-Public Use
  Company Number: None

PATIENT
  Age: 85 Year
  Sex: Male

DRUGS (2)
  1. IMATINIB MESYLATE [Suspect]
     Active Substance: IMATINIB MESYLATE
     Indication: Gastrointestinal stromal tumour
     Dosage: TAKE 2 TABLETS (200 MG TOTAL) BY MOUTH DAILY
     Route: 048
     Dates: start: 20210813
  2. IMATINIB MESYLATE [Suspect]
     Active Substance: IMATINIB MESYLATE
     Route: 048
     Dates: start: 20210813

REACTIONS (1)
  - Hospitalisation [None]

NARRATIVE: CASE EVENT DATE: 20211007
